FAERS Safety Report 20374974 (Version 1)
Quarter: 2022Q1

REPORT INFORMATION
  Report Type: Spontaneous
  Country: US (occurrence: US)
  Receive Date: 20220125
  Receipt Date: 20220125
  Transmission Date: 20220423
  Serious: No
  Sender: FDA-Public Use
  Company Number: US-SANOFI-00939252

PATIENT
  Sex: Female

DRUGS (3)
  1. DUPIXENT [Suspect]
     Active Substance: DUPILUMAB
     Indication: Dermatitis atopic
     Dosage: 200 MG
     Dates: start: 20210518, end: 20210518
  2. HYDROCORTISONE [Concomitant]
     Active Substance: HYDROCORTISONE
  3. TRETINOIN [Concomitant]
     Active Substance: TRETINOIN
     Indication: Dermatitis atopic

REACTIONS (4)
  - Acne [Unknown]
  - Blepharitis [Unknown]
  - Erythema [Unknown]
  - Dermatitis atopic [Unknown]
